FAERS Safety Report 10051876 (Version 7)
Quarter: 2014Q2

REPORT INFORMATION
  Report Type: Report from Study
  Country: CA (occurrence: CA)
  Receive Date: 20140402
  Receipt Date: 20140527
  Transmission Date: 20141212
  Serious: Yes (Other)
  Sender: FDA-Public Use
  Company Number: CA-ROCHE-1321189

PATIENT
  Sex: Female
  Weight: 59.7 kg

DRUGS (10)
  1. AVASTIN [Suspect]
     Indication: COLON CANCER METASTATIC
     Route: 042
     Dates: start: 201209
  2. AVASTIN [Suspect]
     Route: 042
     Dates: start: 20140108
  3. AVASTIN [Suspect]
     Route: 042
     Dates: start: 20140108, end: 20140514
  4. FOLINIC ACID [Suspect]
     Indication: COLON CANCER METASTATIC
     Route: 042
     Dates: start: 201209
  5. FLUOROURACIL [Suspect]
     Indication: COLON CANCER METASTATIC
     Route: 042
     Dates: start: 201209
  6. IRINOTECAN [Suspect]
     Indication: COLON CANCER METASTATIC
     Route: 042
     Dates: start: 201209, end: 20131108
  7. ELTROXIN [Concomitant]
  8. METFORMIN [Concomitant]
     Dosage: PRN
     Route: 065
  9. LACTULOSE [Concomitant]
     Dosage: PRN
     Route: 065
  10. OXALIPLATIN [Concomitant]

REACTIONS (6)
  - Blood test abnormal [Unknown]
  - Hypertension [Unknown]
  - White blood cell count decreased [Not Recovered/Not Resolved]
  - Drug administration error [Unknown]
  - Drug ineffective [Unknown]
  - Disease progression [Not Recovered/Not Resolved]
